FAERS Safety Report 25801297 (Version 1)
Quarter: 2025Q3

REPORT INFORMATION
  Report Type: Spontaneous
  Country: US (occurrence: US)
  Receive Date: 20250915
  Receipt Date: 20250915
  Transmission Date: 20251020
  Serious: No
  Sender: MICRO LABS
  Company Number: US-862174955-ML2025-04564

PATIENT
  Age: 74 Year
  Sex: Female
  Weight: 54 kg

DRUGS (1)
  1. CROMOLYN SODIUM [Suspect]
     Active Substance: CROMOLYN SODIUM
     Indication: Mastocytosis
     Dosage: DOSE: ONE AMPOULE?FREQUENCY: 4 TIMES A DAY?INDICATION: MAST CELLS?STRENGTH: 100 MG/5 ML
     Route: 048
     Dates: start: 202508

REACTIONS (2)
  - Incorrect dose administered [Unknown]
  - Product packaging issue [Unknown]

NARRATIVE: CASE EVENT DATE: 20250801
